FAERS Safety Report 4265775-3 (Version None)
Quarter: 2004Q1

REPORT INFORMATION
  Report Type: 
  Country: None (occurrence: None)
  Receive Date: 20040107
  Receipt Date: 20040107
  Transmission Date: 20041129
  Serious: Yes (Life-Threatening, Hospitalization)
  Sender: FDA-Public Use
  Company Number: None

PATIENT
  Sex: Female

DRUGS (7)
  1. AVINZA [Suspect]
     Indication: PAIN
     Dosage: 300 MG EACH DAY ORAL
     Route: 048
     Dates: start: 20031210, end: 20031211
  2. PREMARIN [Concomitant]
  3. PREVACID [Concomitant]
  4. ATARAX [Concomitant]
  5. NEURONTIN [Concomitant]
  6. LORTAB [Concomitant]
  7. LASIX [Concomitant]

REACTIONS (11)
  - ASTHENIA [None]
  - CONVULSION [None]
  - DEHYDRATION [None]
  - DIZZINESS [None]
  - HYPERCAPNIA [None]
  - LETHARGY [None]
  - MENTAL STATUS CHANGES [None]
  - PAIN [None]
  - RENAL FAILURE ACUTE [None]
  - RESPIRATORY DISORDER [None]
  - URINARY TRACT INFECTION [None]
